FAERS Safety Report 6329149-3 (Version None)
Quarter: 2009Q3

REPORT INFORMATION
  Report Type: 
  Country: None (occurrence: None)
  Receive Date: 20090826
  Receipt Date: 20090814
  Transmission Date: 20100115
  Serious: Yes (Hospitalization)
  Sender: FDA-Public Use
  Company Number: US-ROCHE-650788

PATIENT
  Sex: Male

DRUGS (3)
  1. OSELTAMIVIR [Suspect]
     Route: 048
     Dates: start: 20090601, end: 20090620
  2. OSELTAMIVIR [Suspect]
     Route: 048
     Dates: start: 20090708
  3. OSELTAMIVIR [Suspect]
     Dosage: ROUTE: ORAL.
     Route: 048
     Dates: start: 20090714, end: 20090806

REACTIONS (5)
  - COUGH [None]
  - DRUG RESISTANCE [None]
  - PATHOGEN RESISTANCE [None]
  - RHINORRHOEA [None]
  - STAPHYLOCOCCAL INFECTION [None]
